FAERS Safety Report 18007757 (Version 1)
Quarter: 2020Q3

REPORT INFORMATION
  Report Type: Report from Study
  Country: CA (occurrence: CA)
  Receive Date: 20200710
  Receipt Date: 20200710
  Transmission Date: 20201103
  Serious: Yes (Hospitalization)
  Sender: FDA-Public Use
  Company Number: CA-JNJFOC-20200609146

PATIENT
  Age: 32 Year
  Sex: Female
  Weight: 49 kg

DRUGS (2)
  1. STELARA [Suspect]
     Active Substance: USTEKINUMAB
  2. STELARA [Suspect]
     Active Substance: USTEKINUMAB
     Indication: CROHN^S DISEASE
     Dosage: 90 MG, LAST INJECTION (19TH) TAKEN ON 03?JUN?2020 (ON THE DAY OF REPORT)
     Route: 058
     Dates: start: 20181221

REACTIONS (2)
  - Abdominal pain [Unknown]
  - Colectomy [Unknown]

NARRATIVE: CASE EVENT DATE: 20200621
